FAERS Safety Report 11662701 (Version 1)
Quarter: 2015Q4

REPORT INFORMATION
  Report Type: Spontaneous
  Country: TR (occurrence: TR)
  Receive Date: 20151027
  Receipt Date: 20151027
  Transmission Date: 20160304
  Serious: Yes (Hospitalization, Other)
  Sender: FDA-Public Use
  Company Number: TR-ACCORD-034730

PATIENT
  Age: 8 Year
  Sex: Male

DRUGS (1)
  1. SERTRALINE [Suspect]
     Active Substance: SERTRALINE HYDROCHLORIDE
     Indication: GENERALISED ANXIETY DISORDER
     Dosage: INITIATED WITH 25 MG/DAY; DOSE WAS INCREASED TO 50 MG/DAY AFTER ONE WEEK

REACTIONS (1)
  - Torticollis [Recovered/Resolved]
